FAERS Safety Report 13270445 (Version 4)
Quarter: 2018Q1

REPORT INFORMATION
  Report Type: Spontaneous
  Country: US (occurrence: US)
  Receive Date: 20170224
  Receipt Date: 20180327
  Transmission Date: 20180508
  Serious: Yes (Hospitalization)
  Sender: FDA-Public Use
  Company Number: US-ACTELION-A-US2016-136585

PATIENT
  Age: 77 Year
  Sex: Female

DRUGS (23)
  1. AMITRIPTYLIN [Concomitant]
     Active Substance: AMITRIPTYLINE
     Dosage: 50 MG, UNK
     Dates: start: 20170828
  2. AMITRIPTYLIN [Concomitant]
     Active Substance: AMITRIPTYLINE
     Dosage: 75 MG, UNK
     Dates: start: 20171220
  3. VERAPAMIL [Concomitant]
     Active Substance: VERAPAMIL HYDROCHLORIDE
     Dosage: 120 MG, UNK
     Dates: start: 20170817
  4. NORTRIPTYLIN [Concomitant]
     Active Substance: NORTRIPTYLINE
     Dosage: 10 MG, UNK
     Dates: start: 20161227, end: 20171223
  5. OPSUMIT [Suspect]
     Active Substance: MACITENTAN
     Indication: PULMONARY ARTERIAL HYPERTENSION
     Dosage: 10 MG, QD
     Route: 048
     Dates: start: 20140207
  6. ARMODAFINIL. [Concomitant]
     Active Substance: ARMODAFINIL
     Dosage: 150 MG, UNK
     Dates: start: 20171030, end: 20171229
  7. XELJANZ [Concomitant]
     Active Substance: TOFACITINIB CITRATE
     Dosage: UNK MG, QD
  8. CARVEDILOL. [Concomitant]
     Active Substance: CARVEDILOL
     Dosage: 25 MG, UNK
     Dates: start: 20170125
  9. CLOTRIM-B [Concomitant]
     Dosage: UNK
     Dates: start: 20180219
  10. POTASSIUM CHLORIDE. [Concomitant]
     Active Substance: POTASSIUM CHLORIDE
     Dosage: 20 MEQ, UNK
     Dates: start: 20170125
  11. METOLAZONE. [Concomitant]
     Active Substance: METOLAZONE
     Dosage: 5 MG, UNK
     Dates: start: 20170807
  12. TRAZODONE [Concomitant]
     Active Substance: TRAZODONE HYDROCHLORIDE
     Dosage: 100 MG, UNK
     Dates: start: 20170215
  13. FUROSEMIDE. [Concomitant]
     Active Substance: FUROSEMIDE
     Dosage: 80 MG, UNK
     Dates: start: 20180223
  14. ROPINIROLE. [Concomitant]
     Active Substance: ROPINIROLE
     Dosage: 1 MG, UNK
     Dates: start: 20170720
  15. GABAPENTIN. [Concomitant]
     Active Substance: GABAPENTIN
     Dosage: 100 MG, UNK
     Dates: start: 20170626
  16. LEVOTHYROXIN [Concomitant]
     Active Substance: LEVOTHYROXINE
     Dosage: 88 MCG, UNK
     Dates: start: 20170324
  17. DEXTROAMPHETAMINE. [Concomitant]
     Active Substance: DEXTROAMPHETAMINE
     Dosage: 10 MG, UNK
     Dates: start: 20171201, end: 20180130
  18. BUMETANIDE. [Concomitant]
     Active Substance: BUMETANIDE
     Dosage: 1 MG, UNK
     Dates: start: 20170106
  19. MUPIROCIN. [Concomitant]
     Active Substance: MUPIROCIN
     Dosage: 2 %, UNK
     Dates: start: 20171227, end: 20180116
  20. FERROUS SULFATE. [Concomitant]
     Active Substance: FERROUS SULFATE
     Dosage: 325 MG, UNK
     Dates: start: 20180226
  21. LEVOTHYROXIN [Concomitant]
     Active Substance: LEVOTHYROXINE
     Dosage: 75 MCG, UNK
     Dates: start: 20180326
  22. KETOCONAZOLE. [Concomitant]
     Active Substance: KETOCONAZOLE
     Dosage: 2 %, UNK
     Dates: start: 20171117, end: 20180106
  23. CEPHALEXIN. [Concomitant]
     Active Substance: CEPHALEXIN
     Dosage: 500 MG, UNK
     Dates: start: 20171219, end: 20180102

REACTIONS (6)
  - Drug dose omission [Unknown]
  - Arthralgia [Not Recovered/Not Resolved]
  - Dyspnoea [Unknown]
  - Fatigue [Not Recovered/Not Resolved]
  - Cardiac failure congestive [Unknown]
  - Asthenia [Not Recovered/Not Resolved]

NARRATIVE: CASE EVENT DATE: 20150801
